FAERS Safety Report 8265538-8 (Version None)
Quarter: 2012Q2

REPORT INFORMATION
  Report Type: 
  Country: None (occurrence: None)
  Receive Date: 20120406
  Receipt Date: 20120330
  Transmission Date: 20120825
  Serious: Yes (Hospitalization, Other)
  Sender: FDA-Public Use
  Company Number: GB-PFIZER INC-2012074525

PATIENT
  Age: 43 Year
  Sex: Male
  Weight: 75.3 kg

DRUGS (3)
  1. SERTRALINE HYDROCHLORIDE [Suspect]
     Indication: DEPRESSION
     Dosage: 50MG
     Route: 048
     Dates: start: 20120227, end: 20120311
  2. GLICLAZIDE [Concomitant]
     Indication: TYPE 2 DIABETES MELLITUS
     Dosage: UNK
  3. METFORMIN HCL [Concomitant]
     Indication: TYPE 2 DIABETES MELLITUS
     Dosage: UNK

REACTIONS (5)
  - GRAND MAL CONVULSION [None]
  - TONGUE BITING [None]
  - VISUAL IMPAIRMENT [None]
  - LOSS OF CONSCIOUSNESS [None]
  - BLOOD GLUCOSE INCREASED [None]
